FAERS Safety Report 19454482 (Version 2)
Quarter: 2021Q2

REPORT INFORMATION
  Report Type: Spontaneous
  Country: US (occurrence: US)
  Receive Date: 20210623
  Receipt Date: 20210628
  Transmission Date: 20210717
  Serious: No
  Sender: FDA-Public Use
  Company Number: US-TEVA-2021-US-1921397

PATIENT
  Sex: Female

DRUGS (20)
  1. TRETINOIN. [Concomitant]
     Active Substance: TRETINOIN
  2. PREMATIN [Concomitant]
  3. PEPCID [Concomitant]
     Active Substance: FAMOTIDINE
  4. XANAX [Concomitant]
     Active Substance: ALPRAZOLAM
  5. HYDROCORTISONE. [Suspect]
     Active Substance: HYDROCORTISONE
     Route: 065
  6. METROPROPOL SUCCINATE [Concomitant]
  7. ROSUVASTATIN. [Concomitant]
     Active Substance: ROSUVASTATIN
  8. ACIPHEX [Concomitant]
     Active Substance: RABEPRAZOLE SODIUM
  9. PAROXETINE HYDROCHLORIDE. [Suspect]
     Active Substance: PAROXETINE HYDROCHLORIDE
     Route: 065
  10. BENAZEPRIL [Suspect]
     Active Substance: BENAZEPRIL HYDROCHLORIDE
     Route: 065
  11. ELIQUIS [Concomitant]
     Active Substance: APIXABAN
  12. DILTIAZEM HCL [Concomitant]
     Active Substance: DILTIAZEM HYDROCHLORIDE
  13. XIIDRA [Concomitant]
     Active Substance: LIFITEGRAST
  14. ZYRTEK [Concomitant]
     Active Substance: CETIRIZINE HYDROCHLORIDE
  15. VITAMIN B12 [Concomitant]
     Active Substance: CYANOCOBALAMIN
  16. VITAMIN D3 [Concomitant]
     Active Substance: CHOLECALCIFEROL
  17. ASPERCREME NOS [Concomitant]
     Active Substance: MENTHOL\TROLAMINE SALICYLATE
  18. HYDROCHLOROTHIAZIDE. [Suspect]
     Active Substance: HYDROCHLOROTHIAZIDE
     Route: 065
  19. COLACE [Concomitant]
     Active Substance: DOCUSATE SODIUM
  20. VOTAREN GEL [Concomitant]

REACTIONS (1)
  - Skin discolouration [Unknown]
